FAERS Safety Report 4901198-9 (Version None)
Quarter: 2006Q1

REPORT INFORMATION
  Report Type: 
  Country: None (occurrence: None)
  Receive Date: 20060202
  Receipt Date: 20060120
  Transmission Date: 20060701
  Serious: Yes (Other)
  Sender: FDA-Public Use
  Company Number: 2005165606

PATIENT
  Sex: Male

DRUGS (3)
  1. ZMAX [Suspect]
     Indication: COUGH
  2. ZMAX [Suspect]
     Indication: DYSPNOEA
  3. ZMAX [Suspect]
     Indication: RESPIRATORY TRACT CONGESTION

REACTIONS (1)
  - PERTUSSIS [None]
